FAERS Safety Report 6025763-3 (Version None)
Quarter: 2008Q4

REPORT INFORMATION
  Report Type: 
  Country: None (occurrence: None)
  Receive Date: 20081224
  Receipt Date: 20081218
  Transmission Date: 20090506
  Serious: Yes (Hospitalization)
  Sender: FDA-Public Use
  Company Number: 2008SP003200

PATIENT

DRUGS (1)
  1. LUNESTA [Suspect]
     Dosage: ORAL
     Route: 048

REACTIONS (3)
  - OVERDOSE [None]
  - SMALL INTESTINAL OBSTRUCTION [None]
  - SUICIDE ATTEMPT [None]
